FAERS Safety Report 6956766-X (Version None)
Quarter: 2010Q3

REPORT INFORMATION
  Report Type: 
  Country: None (occurrence: None)
  Receive Date: 20100830
  Receipt Date: 20100820
  Transmission Date: 20110219
  Serious: Yes (Hospitalization)
  Sender: FDA-Public Use
  Company Number: US-ABBOTT-10P-163-0665027-00

PATIENT
  Sex: Male
  Weight: 85.806 kg

DRUGS (3)
  1. TRILIPIX [Suspect]
     Indication: DYSLIPIDAEMIA
     Route: 048
     Dates: start: 20100515, end: 20100813
  2. CRESTOR [Concomitant]
     Indication: DYSLIPIDAEMIA
  3. INSULIN [Concomitant]
     Indication: DIABETES MELLITUS

REACTIONS (3)
  - ABDOMINAL PAIN [None]
  - NEUROENDOCRINE TUMOUR [None]
  - PANCREATITIS ACUTE [None]
